FAERS Safety Report 9454242 (Version 1)
Quarter: 2013Q3

REPORT INFORMATION
  Report Type: Spontaneous
  Country: US (occurrence: None)
  Receive Date: 20130809
  Receipt Date: 20130809
  Transmission Date: 20140515
  Serious: No
  Sender: FDA-Public Use
  Company Number: None

PATIENT
  Age: 66 Year
  Sex: Female
  Weight: 65.77 kg

DRUGS (1)
  1. FLUOROURACIL [Suspect]
     Indication: PRECANCEROUS SKIN LESION
     Dosage: APPLY TO PRE CANCEROUS AREA ON ONCE DAILY APPLIED TO A SURFACE, USUALLY THE SKIN
     Route: 061
     Dates: start: 20130601, end: 20130619

REACTIONS (6)
  - Ageusia [None]
  - Glossodynia [None]
  - Tongue disorder [None]
  - Drooling [None]
  - Glossitis [None]
  - Tongue disorder [None]
